FAERS Safety Report 22746681 (Version 9)
Quarter: 2025Q1

REPORT INFORMATION
  Report Type: Report from Study
  Country: SA (occurrence: SA)
  Receive Date: 20230725
  Receipt Date: 20250322
  Transmission Date: 20250409
  Serious: Yes (Other)
  Sender: ROCHE
  Company Number: SA-ROCHE-3271088

PATIENT
  Age: 2 Year
  Sex: Male
  Weight: 18 kg

DRUGS (6)
  1. EVRYSDI [Suspect]
     Active Substance: RISDIPLAM
     Indication: Spinal muscular atrophy
     Dosage: 1ST ADMINISTRATION DOSE (OVERDOSE): 18/JAN/2023
     Route: 048
     Dates: start: 20230118
  2. EVRYSDI [Suspect]
     Active Substance: RISDIPLAM
     Route: 048
  3. EVRYSDI [Suspect]
     Active Substance: RISDIPLAM
     Route: 048
  4. EVRYSDI [Suspect]
     Active Substance: RISDIPLAM
     Route: 048
  5. EVRYSDI [Suspect]
     Active Substance: RISDIPLAM
     Route: 048
  6. EVRYSDI [Suspect]
     Active Substance: RISDIPLAM
     Route: 048

REACTIONS (11)
  - Product dispensing error [Unknown]
  - Incorrect dose administered [Unknown]
  - Cough [Recovering/Resolving]
  - Nasopharyngitis [Recovering/Resolving]
  - Pyrexia [Recovered/Resolved]
  - Bone fissure [Not Recovered/Not Resolved]
  - Fall [Unknown]
  - Overdose [Unknown]
  - Vomiting [Recovered/Resolved]
  - Dysuria [Recovered/Resolved]
  - Endodontic procedure [Not Recovered/Not Resolved]

NARRATIVE: CASE EVENT DATE: 20230118
